FAERS Safety Report 7658814-0 (Version None)
Quarter: 2011Q3

REPORT INFORMATION
  Report Type: 
  Country: None (occurrence: None)
  Receive Date: 20110805
  Receipt Date: 20110728
  Transmission Date: 20111222
  Serious: Yes (Other)
  Sender: FDA-Public Use
  Company Number: US-JNJFOC-20110800678

PATIENT
  Sex: Male
  Weight: 96.62 kg

DRUGS (1)
  1. REMICADE [Suspect]
     Indication: COLITIS ULCERATIVE
     Route: 042
     Dates: start: 20100101

REACTIONS (3)
  - AORTIC ANEURYSM [None]
  - DIARRHOEA [None]
  - BONE DISORDER [None]
